FAERS Safety Report 5211381-3 (Version None)
Quarter: 2007Q1

REPORT INFORMATION
  Report Type: 
  Country: None (occurrence: None)
  Receive Date: 20070117
  Receipt Date: 20061225
  Transmission Date: 20070707
  Serious: Yes (Hospitalization)
  Sender: FDA-Public Use
  Company Number: HQWYE064202JAN07

PATIENT
  Age: 63 Year
  Sex: Female

DRUGS (4)
  1. ENBREL [Suspect]
     Indication: RHEUMATOID ARTHRITIS
     Dosage: 25 MG, FREQUENCY NOT SPECIFIED
     Route: 058
     Dates: start: 20061205, end: 20061222
  2. GASTER [Concomitant]
     Dosage: UNSPECIFIED
     Route: 065
  3. PYDOXAL [Concomitant]
     Dosage: UNSPECIFIED
     Route: 065
  4. ISCOTIN [Concomitant]
     Dosage: UNSPECIFIED
     Route: 065

REACTIONS (3)
  - DISSEMINATED INTRAVASCULAR COAGULATION [None]
  - LIVER DISORDER [None]
  - RENAL FAILURE ACUTE [None]
